FAERS Safety Report 25079199 (Version 2)
Quarter: 2025Q2

REPORT INFORMATION
  Report Type: Report from Study
  Country: US (occurrence: US)
  Receive Date: 20250314
  Receipt Date: 20250618
  Transmission Date: 20250716
  Serious: No
  Sender: ACADIA PHARMACEUTICALS
  Company Number: US-ACADIA PHARMACEUTICALS INC.-ACA-2025-TRF-002900

PATIENT
  Sex: Female

DRUGS (8)
  1. DAYBUE [Suspect]
     Active Substance: TROFINETIDE
     Indication: Rett syndrome
     Dosage: 60 MILLILITER, BID
     Route: 048
  2. DAYBUE [Suspect]
     Active Substance: TROFINETIDE
     Route: 048
  3. DAYBUE [Suspect]
     Active Substance: TROFINETIDE
     Route: 048
  4. DAYBUE [Suspect]
     Active Substance: TROFINETIDE
     Route: 048
  5. DAYBUE [Suspect]
     Active Substance: TROFINETIDE
     Route: 048
  6. DAYBUE [Suspect]
     Active Substance: TROFINETIDE
     Route: 048
  7. DAYBUE [Suspect]
     Active Substance: TROFINETIDE
     Route: 048
  8. DAYBUE [Suspect]
     Active Substance: TROFINETIDE
     Route: 048

REACTIONS (7)
  - Constipation [Not Recovered/Not Resolved]
  - Affect lability [Not Recovered/Not Resolved]
  - Weight increased [Not Recovered/Not Resolved]
  - Drug effect less than expected [Not Recovered/Not Resolved]
  - Irritability [Not Recovered/Not Resolved]
  - Diarrhoea [Not Recovered/Not Resolved]
  - Underdose [Not Recovered/Not Resolved]
